FAERS Safety Report 9179166 (Version 1)
Quarter: 2012Q4

REPORT INFORMATION
  Report Type: 
  Country: US (occurrence: US)
  Receive Date: 20121029
  Receipt Date: 20121029
  Transmission Date: 20130627
  Serious: Yes (Other)
  Sender: FDA-Public Use
  Company Number: US-JNJFOC-20121012877

PATIENT
  Age: 38 Year
  Sex: Female

DRUGS (2)
  1. REMICADE [Suspect]
     Indication: RHEUMATOID ARTHRITIS
     Route: 042
  2. BENADRYL [Suspect]
     Indication: NONSPECIFIC REACTION
     Route: 065

REACTIONS (4)
  - Urticaria [Unknown]
  - Dyspnoea [Unknown]
  - Abdominal pain [Unknown]
  - Swelling [None]
